FAERS Safety Report 7692801-1 (Version None)
Quarter: 2011Q3

REPORT INFORMATION
  Report Type: 
  Country: None (occurrence: None)
  Receive Date: 20110819
  Receipt Date: 20110816
  Transmission Date: 20111222
  Serious: No
  Sender: FDA-Public Use
  Company Number: US-PFIZER INC-2011169436

PATIENT
  Age: 55 Year
  Sex: Female
  Weight: 52.154 kg

DRUGS (4)
  1. FLECTOR [Suspect]
     Dosage: UNK
     Dates: start: 20110725, end: 20110725
  2. ZYRTEC [Concomitant]
     Indication: HYPERSENSITIVITY
     Dosage: UNK
  3. MONTELUKAST [Concomitant]
     Dosage: UNK
  4. GUAIFENESIN [Concomitant]
     Dosage: UNK

REACTIONS (4)
  - DRUG HYPERSENSITIVITY [None]
  - RHINORRHOEA [None]
  - SNEEZING [None]
  - LACRIMATION INCREASED [None]
